FAERS Safety Report 23645749 (Version 1)
Quarter: 2024Q1

REPORT INFORMATION
  Report Type: Spontaneous
  Country: SE (occurrence: None)
  Receive Date: 20240319
  Receipt Date: 20240319
  Transmission Date: 20240410
  Serious: Yes (Hospitalization)
  Sender: FDA-Public Use
  Company Number: 2024A059489

PATIENT
  Age: 30 Year
  Sex: Male

DRUGS (5)
  1. SEROQUEL [Suspect]
     Active Substance: QUETIAPINE FUMARATE
     Indication: Persistent depressive disorder
     Dosage: 100 MG/DAY
     Route: 048
     Dates: start: 20100413, end: 20100519
  2. SEROQUEL [Suspect]
     Active Substance: QUETIAPINE FUMARATE
     Indication: Persistent depressive disorder
     Dosage: 200 MG/DAY
     Route: 048
     Dates: start: 20100420, end: 20100519
  3. LYRICA [Suspect]
     Active Substance: PREGABALIN
     Route: 048
  4. LYRICA [Suspect]
     Active Substance: PREGABALIN
     Route: 048
  5. CYMBALTA [Suspect]
     Active Substance: DULOXETINE HYDROCHLORIDE
     Route: 048

REACTIONS (1)
  - Myoclonus [Recovered/Resolved]

NARRATIVE: CASE EVENT DATE: 20100420
